FAERS Safety Report 4598240-4 (Version None)
Quarter: 2005Q1

REPORT INFORMATION
  Report Type: 
  Country: None (occurrence: None)
  Receive Date: 20050302
  Receipt Date: 20050216
  Transmission Date: 20050727
  Serious: No
  Sender: FDA-Public Use
  Company Number: 2005SP000047

PATIENT
  Sex: 0

DRUGS (1)
  1. XOPENEX [Suspect]
     Dosage: INHALATION
     Route: 055

REACTIONS (2)
  - BRONCHOSPASM [None]
  - OVERDOSE [None]
